FAERS Safety Report 7085331-1 (Version None)
Quarter: 2010Q4

REPORT INFORMATION
  Report Type: 
  Country: None (occurrence: None)
  Receive Date: 20101105
  Receipt Date: 20101025
  Transmission Date: 20110411
  Serious: Yes (Other)
  Sender: FDA-Public Use
  Company Number: US-PFIZER INC-2010136226

PATIENT
  Sex: Female
  Weight: 88.45 kg

DRUGS (1)
  1. GEODON [Suspect]
     Indication: AGITATION
     Dosage: 10 MG, AS NEEDED
     Route: 030
     Dates: start: 20101004

REACTIONS (2)
  - HYPOTENSION [None]
  - INCORRECT ROUTE OF DRUG ADMINISTRATION [None]
